FAERS Safety Report 5502594-1 (Version None)
Quarter: 2007Q4

REPORT INFORMATION
  Report Type: 
  Country: None (occurrence: None)
  Receive Date: 20071031
  Receipt Date: 20071023
  Transmission Date: 20080405
  Serious: Yes (Hospitalization)
  Sender: FDA-Public Use
  Company Number: PHNU2007DE03550

PATIENT

DRUGS (1)
  1. DIOVAN [Suspect]

REACTIONS (1)
  - PORPHYRIA NON-ACUTE [None]
